FAERS Safety Report 7883683-3 (Version None)
Quarter: 2011Q4

REPORT INFORMATION
  Report Type: 
  Country: None (occurrence: None)
  Receive Date: 20111102
  Receipt Date: 20111025
  Transmission Date: 20120403
  Serious: Yes (Hospitalization)
  Sender: FDA-Public Use
  Company Number: DE-PFIZER INC-2011266070

PATIENT
  Age: 84 Year
  Sex: Male

DRUGS (2)
  1. MARCUMAR [Concomitant]
  2. AMIODARONE HCL [Suspect]
     Dosage: UNK
     Route: 048

REACTIONS (1)
  - HAEMATOMA [None]
